FAERS Safety Report 4538173-2 (Version None)
Quarter: 2004Q4

REPORT INFORMATION
  Report Type: 
  Country: None (occurrence: None)
  Receive Date: 20041223
  Receipt Date: 20041223
  Transmission Date: 20050328
  Serious: Yes (Hospitalization)
  Sender: FDA-Public Use
  Company Number: None

PATIENT
  Age: 38 Year
  Sex: Male
  Weight: 87.0906 kg

DRUGS (2)
  1. STRATTERA [Suspect]
     Indication: ATTENTION DEFICIT/HYPERACTIVITY DISORDER
     Dosage: 60MG  40MG ORAL
     Route: 048
     Dates: start: 20041108, end: 20041220
  2. CYMBALTA [Suspect]
     Indication: DEPRESSION
     Dosage: 60MG ORAL
     Route: 048
     Dates: start: 20041016, end: 20041222

REACTIONS (6)
  - CHEST PAIN [None]
  - DIZZINESS [None]
  - DYSPNOEA [None]
  - DYSSTASIA [None]
  - HEART RATE INCREASED [None]
  - VISUAL DISTURBANCE [None]
